FAERS Safety Report 23337249 (Version 1)
Quarter: 2023Q4

REPORT INFORMATION
  Report Type: Spontaneous
  Country: US (occurrence: US)
  Receive Date: 20231226
  Receipt Date: 20231226
  Transmission Date: 20240110
  Serious: Yes (Death, Other)
  Sender: FDA-Public Use
  Company Number: US-OPELLA-2023OHG020295

PATIENT
  Age: 43 Year
  Sex: Male

DRUGS (1)
  1. TALC [Suspect]
     Active Substance: TALC
     Indication: Product used for unknown indication
     Route: 065

REACTIONS (4)
  - Exposure to chemical pollution [Fatal]
  - Mesothelioma malignant [Fatal]
  - Anxiety [Unknown]
  - Pain [Unknown]

NARRATIVE: CASE EVENT DATE: 19780101
